FAERS Safety Report 12502780 (Version 1)
Quarter: 2016Q2

REPORT INFORMATION
  Report Type: Spontaneous
  Country: US (occurrence: US)
  Receive Date: 20160628
  Receipt Date: 20160628
  Transmission Date: 20160815
  Serious: No
  Sender: FDA-Public Use
  Company Number: US-BRISTOL-MYERS SQUIBB COMPANY-BMS-2016-047057

PATIENT
  Sex: Female

DRUGS (1)
  1. ORENCIA [Suspect]
     Active Substance: ABATACEPT
     Indication: RHEUMATOID ARTHRITIS
     Route: 058

REACTIONS (6)
  - Influenza [Unknown]
  - Pain in extremity [Unknown]
  - Pain [Unknown]
  - Musculoskeletal pain [Unknown]
  - Myalgia [Unknown]
  - Arthralgia [Unknown]
